FAERS Safety Report 4596224-3 (Version None)
Quarter: 2005Q1

REPORT INFORMATION
  Report Type: 
  Country: None (occurrence: None)
  Receive Date: 20050302
  Receipt Date: 20050218
  Transmission Date: 20050727
  Serious: Yes (Other)
  Sender: FDA-Public Use
  Company Number: US-GLAXOSMITHKLINE-A0546139A

PATIENT
  Age: 75 Year
  Sex: Female

DRUGS (5)
  1. TUMS REGULAR [Suspect]
     Indication: DYSPEPSIA
     Route: 048
     Dates: start: 20020101
  2. PREDNISONE [Concomitant]
  3. MAXZIDE [Concomitant]
  4. ASPIRIN [Concomitant]
  5. LIPITOR [Concomitant]

REACTIONS (2)
  - GLAUCOMA [None]
  - VISION BLURRED [None]
